FAERS Safety Report 5161607-X (Version None)
Quarter: 2006Q4

REPORT INFORMATION
  Report Type: 
  Country: None (occurrence: None)
  Receive Date: 20061130
  Receipt Date: 20061120
  Transmission Date: 20070319
  Serious: Yes (Other)
  Sender: FDA-Public Use
  Company Number: US-KINGPHARMUSA00001-K200601493

PATIENT
  Age: 36 Year
  Sex: Female

DRUGS (6)
  1. ALTACE [Suspect]
     Dosage: 5 MG, QD
     Route: 048
  2. OFLOCET                            /00731801/ [Suspect]
     Dosage: 400 MG, QD
     Route: 048
     Dates: start: 20060415
  3. DALACINE - PER [Suspect]
     Dosage: 6 CAPS, QD
     Route: 048
     Dates: start: 20060415
  4. INSULIN [Suspect]
     Route: 058
  5. XALATAN [Suspect]
  6. COSOPT                             /01419801/ [Suspect]

REACTIONS (4)
  - ABORTION [None]
  - DRUG EXPOSURE DURING PREGNANCY [None]
  - INTRA-UTERINE DEATH [None]
  - PREGNANCY [None]
